FAERS Safety Report 8434743-X (Version None)
Quarter: 2012Q2

REPORT INFORMATION
  Report Type: 
  Country: None (occurrence: None)
  Receive Date: 20120323
  Receipt Date: 20110811
  Transmission Date: 20120825
  Serious: Yes (Hospitalization)
  Sender: FDA-Public Use
  Company Number: 163-21880-11070531

PATIENT
  Age: 60 Year
  Sex: Male

DRUGS (3)
  1. REVLIMID [Suspect]
     Indication: MULTIPLE MYELOMA
     Dosage: 15 MG, 1 IN 1 D, PO    10 MG, 1 IN 1 D, PO    15 MG, 1 IN 1 D, PO
     Route: 048
     Dates: start: 20080801
  2. REVLIMID [Suspect]
     Indication: MULTIPLE MYELOMA
     Dosage: 15 MG, 1 IN 1 D, PO    10 MG, 1 IN 1 D, PO    15 MG, 1 IN 1 D, PO
     Route: 048
     Dates: start: 20101101, end: 20110701
  3. REVLIMID [Suspect]
     Indication: MULTIPLE MYELOMA
     Dosage: 15 MG, 1 IN 1 D, PO    10 MG, 1 IN 1 D, PO    15 MG, 1 IN 1 D, PO
     Route: 048
     Dates: start: 20081201

REACTIONS (2)
  - FEBRILE NEUTROPENIA [None]
  - FULL BLOOD COUNT DECREASED [None]
